FAERS Safety Report 10655515 (Version 3)
Quarter: 2015Q1

REPORT INFORMATION
  Report Type: Report from Study
  Country: US (occurrence: US)
  Receive Date: 20141216
  Receipt Date: 20150216
  Transmission Date: 20150720
  Serious: Yes (Hospitalization, Other)
  Sender: FDA-Public Use
  Company Number: US-GILEAD-2014-0127113

PATIENT
  Age: 76 Year
  Sex: Male

DRUGS (14)
  1. IDELALISIB [Suspect]
     Active Substance: IDELALISIB
     Indication: LYMPHOMA
     Dosage: 150 MG, BID
     Route: 048
     Dates: start: 20141002, end: 20141102
  2. NOVOLOG [Concomitant]
     Active Substance: INSULIN ASPART
  3. VITAMIN D [Concomitant]
     Active Substance: CHOLECALCIFEROL
  4. TRICOR                             /00090101/ [Concomitant]
     Indication: BLOOD CHOLESTEROL INCREASED
     Dosage: UNK
  5. CLONIDINE. [Concomitant]
     Active Substance: CLONIDINE
  6. LASIX [Concomitant]
     Active Substance: FUROSEMIDE
     Indication: SWELLING
  7. CARVEDILOL. [Concomitant]
     Active Substance: CARVEDILOL
     Indication: CARDIAC DISORDER
  8. IDELALISIB [Suspect]
     Active Substance: IDELALISIB
     Dosage: 150 MG, BID
     Route: 048
     Dates: start: 20141208
  9. ZOLOFT [Concomitant]
     Active Substance: SERTRALINE HYDROCHLORIDE
     Indication: DEPRESSION
     Dosage: UNK
  10. EXELON [Concomitant]
     Active Substance: RIVASTIGMINE TARTRATE
  11. KLOR-CON [Concomitant]
     Active Substance: POTASSIUM CHLORIDE
     Indication: ELECTROLYTE SUBSTITUTION THERAPY
  12. DARVOCET [Concomitant]
     Active Substance: ACETAMINOPHEN\PROPOXYPHENE HYDROCHLORIDE
  13. COUMADIN [Concomitant]
     Active Substance: WARFARIN SODIUM
  14. LANTUS [Concomitant]
     Active Substance: INSULIN GLARGINE

REACTIONS (6)
  - Dementia [Not Recovered/Not Resolved]
  - Pneumonia [Unknown]
  - Fall [Unknown]
  - Blood calcium increased [Unknown]
  - Pyrexia [Unknown]
  - Hemiparesis [Unknown]

NARRATIVE: CASE EVENT DATE: 20141105
